FAERS Safety Report 10204804 (Version 1)
Quarter: 2014Q2

REPORT INFORMATION
  Report Type: Spontaneous
  Country: PT (occurrence: PT)
  Receive Date: 20140529
  Receipt Date: 20140529
  Transmission Date: 20141212
  Serious: Yes (Other)
  Sender: FDA-Public Use
  Company Number: PT-JNJFOC-20140517402

PATIENT
  Age: 50 Year
  Sex: Female

DRUGS (3)
  1. REMICADE [Suspect]
     Indication: CROHN^S DISEASE
     Route: 042
     Dates: start: 20131230, end: 20140411
  2. AZATHIOPRINE [Concomitant]
     Route: 065
     Dates: start: 20131101
  3. ANTIBIOTICS [Concomitant]
     Route: 065
     Dates: start: 20131101

REACTIONS (3)
  - Dyspnoea [Recovered/Resolved]
  - Hypotension [Recovered/Resolved]
  - Stridor [Recovered/Resolved]
